FAERS Safety Report 19841989 (Version 1)
Quarter: 2021Q3

REPORT INFORMATION
  Report Type: Other
  Country: FR (occurrence: FR)
  Receive Date: 20210916
  Receipt Date: 20210916
  Transmission Date: 20211014
  Serious: Yes (Hospitalization, Other)
  Sender: FDA-Public Use
  Company Number: FR-ASTELLAS-2021US034257

PATIENT
  Age: 60 Year
  Sex: Male

DRUGS (2)
  1. AMPHOTERICIN B, LIPOSOME [Suspect]
     Active Substance: AMPHOTERICIN B
     Indication: VISCERAL LEISHMANIASIS
     Dosage: 3 MG/KG/HOUR, OTHER
     Route: 042
     Dates: start: 20210602
  2. MILTEFOSINE [Suspect]
     Active Substance: MILTEFOSINE
     Indication: VISCERAL LEISHMANIASIS
     Dosage: 50 MG*3/HOUR
     Route: 042
     Dates: start: 20210605

REACTIONS (1)
  - Tubulointerstitial nephritis [Recovering/Resolving]

NARRATIVE: CASE EVENT DATE: 20210629
